FAERS Safety Report 4537820-9 (Version None)
Quarter: 2004Q4

REPORT INFORMATION
  Report Type: 
  Country: None (occurrence: None)
  Receive Date: 20041224
  Receipt Date: 20040811
  Transmission Date: 20050328
  Serious: Yes (Hospitalization, Other)
  Sender: FDA-Public Use
  Company Number: GB-MERCK-0409GBR00043

PATIENT
  Age: 17 Year
  Sex: Male

DRUGS (4)
  1. CANCIDAS [Suspect]
     Indication: FUNGAL INFECTION
     Route: 042
     Dates: start: 20040624, end: 20040812
  2. CANCIDAS [Suspect]
     Indication: LUNG INFECTION
     Route: 042
     Dates: start: 20040624, end: 20040812
  3. GRANULOCYTE COLONY STIMULATING FACTOR (UNSPECIFIED) [Concomitant]
     Indication: NEUTROPENIA
     Route: 065
  4. ANTIMICROBIAL (UNSPECIFIED) [Concomitant]
     Route: 065

REACTIONS (2)
  - APLASIA PURE RED CELL [None]
  - HAEMOLYTIC ANAEMIA [None]
